FAERS Safety Report 13435978 (Version 1)
Quarter: 2017Q2

REPORT INFORMATION
  Report Type: Spontaneous
  Country: US (occurrence: US)
  Receive Date: 20170413
  Receipt Date: 20170413
  Transmission Date: 20170830
  Serious: Yes (Life-Threatening, Hospitalization, Other)
  Sender: FDA-Public Use
  Company Number: US-INDIVIOR LIMITED-INDV-100286-2017

PATIENT
  Age: 48 Year
  Sex: Male

DRUGS (3)
  1. METHADONE [Suspect]
     Active Substance: METHADONE HYDROCHLORIDE
     Indication: DRUG USE DISORDER
     Dosage: 50 MG DAILY
     Route: 065
     Dates: start: 201609
  2. SUBOXONE [Suspect]
     Active Substance: BUPRENORPHINE HYDROCHLORIDE\NALOXONE HYDROCHLORIDE
     Dosage: 8MG TID
     Dates: start: 2016
  3. SUBOXONE [Suspect]
     Active Substance: BUPRENORPHINE HYDROCHLORIDE\NALOXONE HYDROCHLORIDE
     Indication: DRUG USE DISORDER
     Dosage: 8MG, DAILY
     Route: 060
     Dates: start: 2000, end: 2007

REACTIONS (10)
  - Nerve injury [Recovered/Resolved]
  - Drug use disorder [Recovered/Resolved]
  - Pharyngo-oesophageal diverticulum [Recovered/Resolved]
  - Neck pain [Recovered/Resolved]
  - Drug withdrawal syndrome [Recovered/Resolved]
  - Sepsis [Recovered/Resolved]
  - Product use issue [Recovered/Resolved]
  - Scar [Recovered/Resolved]
  - Back disorder [Unknown]
  - Substance use disorder [Recovered/Resolved]

NARRATIVE: CASE EVENT DATE: 2002
